FAERS Safety Report 20087887 (Version 3)
Quarter: 2022Q2

REPORT INFORMATION
  Report Type: Spontaneous
  Country: FR (occurrence: FR)
  Receive Date: 20211118
  Receipt Date: 20220414
  Transmission Date: 20220721
  Serious: Yes (Hospitalization)
  Sender: FDA-Public Use
  Company Number: None

PATIENT
  Age: 48 Year
  Sex: Female
  Weight: 88 kg

DRUGS (4)
  1. XELJANZ [Suspect]
     Active Substance: TOFACITINIB CITRATE
     Indication: Psoriatic arthropathy
     Dosage: 5 MG, 1X/DAY
     Route: 048
     Dates: start: 20210119, end: 20210609
  2. ALPRAZOLAM [Concomitant]
     Active Substance: ALPRAZOLAM
     Dosage: UNK
  3. VENLAFAXINE HYDROCHLORIDE [Concomitant]
     Active Substance: VENLAFAXINE HYDROCHLORIDE
     Dosage: UNK
  4. SULPIRIDE [Concomitant]
     Active Substance: SULPIRIDE
     Dosage: UNK

REACTIONS (10)
  - Fatigue [Not Recovered/Not Resolved]
  - Lymphadenopathy [Recovering/Resolving]
  - Mixed liver injury [Recovering/Resolving]
  - Vomiting [Recovered/Resolved]
  - Chills [Recovered/Resolved]
  - Pyrexia [Recovered/Resolved]
  - Episcleritis [Recovered/Resolved]
  - Deafness unilateral [Not Recovered/Not Resolved]
  - Diarrhoea [Recovered/Resolved]
  - Tooth injury [Recovered/Resolved with Sequelae]

NARRATIVE: CASE EVENT DATE: 20210601
